FAERS Safety Report 10311444 (Version 2)
Quarter: 2014Q3

REPORT INFORMATION
  Report Type: Spontaneous
  Country: AU (occurrence: AU)
  Receive Date: 20140717
  Receipt Date: 20140724
  Transmission Date: 20150326
  Serious: Yes (Other)
  Sender: FDA-Public Use
  Company Number: AU-ALLERGAN-1415552US

PATIENT
  Age: 76 Year
  Sex: Male

DRUGS (2)
  1. ALPHAGAN P [Suspect]
     Active Substance: BRIMONIDINE TARTRATE
     Indication: PRODUCT USED FOR UNKNOWN INDICATION
     Dosage: ^2 DOSE UNSPECIFIED DAILY^
     Route: 047
     Dates: start: 19980327, end: 19980330
  2. TIMPILO [Concomitant]
     Active Substance: PILOCARPINE HYDROCHLORIDE\TIMOLOL MALEATE
     Dosage: ^2 DOSE UNSPECIFIED DAILY^

REACTIONS (3)
  - Urinary retention [Recovered/Resolved]
  - Mydriasis [Recovered/Resolved]
  - Dry mouth [Recovered/Resolved]

NARRATIVE: CASE EVENT DATE: 19980327
